FAERS Safety Report 8721215 (Version 7)
Quarter: 2017Q2

REPORT INFORMATION
  Report Type: Spontaneous
  Country: US (occurrence: US)
  Receive Date: 20120813
  Receipt Date: 20170428
  Transmission Date: 20170830
  Serious: No
  Sender: FDA-Public Use
  Company Number: US-ASTRAZENECA-2012SE55229

PATIENT
  Age: 56 Year
  Sex: Female
  Weight: 63 kg

DRUGS (16)
  1. PULMICORT FLEXHALER [Suspect]
     Active Substance: BUDESONIDE
     Indication: CHRONIC OBSTRUCTIVE PULMONARY DISEASE
     Dosage: 180 MCG 4 PUFFS BID
     Route: 055
  2. SPIRIVA [Concomitant]
     Active Substance: TIOTROPIUM BROMIDE MONOHYDRATE
     Indication: CHRONIC OBSTRUCTIVE PULMONARY DISEASE
     Route: 048
  3. MELATONIN [Concomitant]
     Active Substance: MELATONIN
     Indication: SLEEP DISORDER
     Route: 048
  4. SYMBICORT [Suspect]
     Active Substance: BUDESONIDE\FORMOTEROL FUMARATE DIHYDRATE
     Route: 055
  5. LORAZEPAM. [Concomitant]
     Active Substance: LORAZEPAM
     Indication: ANXIETY
     Dosage: 2.0MG AS REQUIRED
     Route: 048
     Dates: start: 2003
  6. ARMOUR THYROID [Concomitant]
     Active Substance: THYROID, PORCINE
     Indication: THYROID DISORDER
     Dosage: 45.0MG UNKNOWN
     Route: 048
     Dates: end: 2012
  7. ARMOUR THYROID [Concomitant]
     Active Substance: THYROID, PORCINE
     Indication: THYROID DISORDER
     Dosage: 60.0MG UNKNOWN
     Route: 048
     Dates: start: 20120926
  8. OXYGEN. [Concomitant]
     Active Substance: OXYGEN
     Dosage: AT BEDTIME SET ON 2
  9. SYNTHROID [Suspect]
     Active Substance: LEVOTHYROXINE SODIUM
     Route: 065
  10. ARMOUR THYROID [Concomitant]
     Active Substance: THYROID, PORCINE
     Indication: THYROID DISORDER
     Dosage: 30.0MG UNKNOWN
     Route: 048
     Dates: start: 201204, end: 2012
  11. PROVENTIL [Concomitant]
     Active Substance: ALBUTEROL
  12. PULMICORT FLEXHALER [Suspect]
     Active Substance: BUDESONIDE
     Indication: CHRONIC OBSTRUCTIVE PULMONARY DISEASE
     Dosage: 180 MCG 2 PUFFS BID
     Route: 055
  13. PEGASYS [Suspect]
     Active Substance: PEGINTERFERON ALFA-2A
     Indication: HEPATITIS C
     Dosage: 1 SHOT PER WEEK
     Route: 065
  14. LASIX [Concomitant]
     Active Substance: FUROSEMIDE
  15. FLEXERIL [Concomitant]
     Active Substance: CYCLOBENZAPRINE HYDROCHLORIDE
  16. OMEPRAZOLE. [Concomitant]
     Active Substance: OMEPRAZOLE

REACTIONS (14)
  - Dyspnoea [Unknown]
  - Dementia [Unknown]
  - Thyroid disorder [Unknown]
  - Cough [Unknown]
  - Drug hypersensitivity [Unknown]
  - Wheezing [Unknown]
  - Muscle spasms [Recovered/Resolved]
  - Depression [Unknown]
  - Drug ineffective [Unknown]
  - Lung disorder [Not Recovered/Not Resolved]
  - Abnormal behaviour [Unknown]
  - Drug intolerance [Unknown]
  - Hepatitis C [Recovered/Resolved]
  - Fatigue [Unknown]

NARRATIVE: CASE EVENT DATE: 2011
